FAERS Safety Report 19056460 (Version 1)
Quarter: 2021Q1

REPORT INFORMATION
  Report Type: Spontaneous
  Country: US (occurrence: US)
  Receive Date: 20210324
  Receipt Date: 20210324
  Transmission Date: 20210420
  Serious: No
  Sender: FDA-Public Use
  Company Number: US-TEVA-2021-US-1892427

PATIENT
  Age: 80 Year
  Sex: Female

DRUGS (1)
  1. MUPIROCIN TEVA [Suspect]
     Active Substance: MUPIROCIN
     Dosage: ROUTE OF ADMIN: INTRA?NASAL

REACTIONS (4)
  - Diarrhoea [Recovered/Resolved]
  - Incorrect route of product administration [Unknown]
  - Joint swelling [Recovered/Resolved]
  - Therapy interrupted [Unknown]
